FAERS Safety Report 6099786-2 (Version None)
Quarter: 2009Q1

REPORT INFORMATION
  Report Type: 
  Country: None (occurrence: None)
  Receive Date: 20090303
  Receipt Date: 20090217
  Transmission Date: 20090719
  Serious: Yes (Hospitalization)
  Sender: FDA-Public Use
  Company Number: PHHY2009JP06073

PATIENT
  Age: 87 Year
  Sex: Female

DRUGS (8)
  1. DIOVAN [Suspect]
     Indication: HYPERTENSION
     Dosage: 80 MG, QD
     Route: 048
  2. DEPAS [Concomitant]
     Route: 048
  3. OPALMON [Concomitant]
     Route: 048
  4. LASIX [Concomitant]
     Route: 048
  5. GASTER D [Concomitant]
     Route: 048
  6. ZYLORIC [Concomitant]
     Route: 048
  7. PERSANTINE [Concomitant]
     Route: 048
  8. SERMION [Concomitant]
     Route: 048

REACTIONS (6)
  - ALTERED STATE OF CONSCIOUSNESS [None]
  - BLOOD PRESSURE SYSTOLIC DECREASED [None]
  - CONDITION AGGRAVATED [None]
  - HEART RATE DECREASED [None]
  - HYPONATRAEMIA [None]
  - PNEUMONIA [None]
